FAERS Safety Report 8473722-3 (Version None)
Quarter: 2012Q2

REPORT INFORMATION
  Report Type: 
  Country: None (occurrence: None)
  Receive Date: 20120628
  Receipt Date: 20111011
  Transmission Date: 20120825
  Serious: Yes (Other)
  Sender: FDA-Public Use
  Company Number: US-MYLANLABS-2011S1020136

PATIENT
  Age: 48 Year
  Sex: Male

DRUGS (4)
  1. CITALOPRAM HYDROBROMIDE [Concomitant]
     Dosage: 20MG, 40MG HS
  2. LORAZEPAM [Concomitant]
     Dosage: 1MG QAM, 0.5MG Q4PM AND Q8PM
  3. ZYPREXA [Concomitant]
  4. CLOZAPINE [Suspect]
     Indication: SCHIZOPHRENIA
     Dates: end: 20110901

REACTIONS (1)
  - GRANULOCYTOPENIA [None]
